FAERS Safety Report 14933686 (Version 2)
Quarter: 2018Q3

REPORT INFORMATION
  Report Type: Report from Study
  Country: HU (occurrence: HU)
  Receive Date: 20180524
  Receipt Date: 20180706
  Transmission Date: 20181010
  Serious: Yes (Death, Hospitalization)
  Sender: FDA-Public Use
  Company Number: HU-CLOVIS ONCOLOGY-CLO-2017-001575

PATIENT

DRUGS (4)
  1. [14C]?RUCAPARIB [Suspect]
     Active Substance: RUCAPARIB
     Indication: VAGINAL CANCER
     Dosage: 600 MG, BID
     Route: 048
     Dates: start: 20171109, end: 20171202
  2. [14C]?RUCAPARIB [Suspect]
     Active Substance: RUCAPARIB
     Dosage: 400 MG, BID
     Route: 048
     Dates: start: 20171202, end: 20171206
  3. ZOLEDRONIC ACID. [Concomitant]
     Active Substance: ZOLEDRONIC ACID
     Indication: METASTASES TO BONE
     Dosage: 4 MG, UNK
     Route: 042
     Dates: start: 20170906
  4. METHYLPREDNISOLONE. [Concomitant]
     Active Substance: METHYLPREDNISOLONE
     Indication: PNEUMONITIS
     Dosage: UNK
     Route: 048
     Dates: start: 20171206, end: 20171211

REACTIONS (1)
  - Neoplasm progression [Fatal]

NARRATIVE: CASE EVENT DATE: 20171211
